FAERS Safety Report 4385548-0 (Version None)
Quarter: 2004Q2

REPORT INFORMATION
  Report Type: 
  Country: None (occurrence: None)
  Receive Date: 20040622
  Receipt Date: 20040611
  Transmission Date: 20050107
  Serious: Yes (Death)
  Sender: FDA-Public Use
  Company Number: F01200401359

PATIENT
  Age: 30 Year
  Sex: Female

DRUGS (3)
  1. OXALIPLATIN [Suspect]
     Indication: COLORECTAL CANCER METASTATIC
     Dosage: 85 MG/M2 Q2W, INTRAVENOUS NOS
     Route: 042
     Dates: start: 20040421, end: 20040421
  2. FLUOROURACIL [Suspect]
     Dosage: 400 MG/M2 IV BOLUS AND 600 MG/M2 AS IV CONTINUOUS INFUSION, INTRAVENOUS NOS
     Route: 042
     Dates: start: 20040421, end: 20040422
  3. LEUCOVORIN CALCIUM [Suspect]
     Dosage: 200 MG/M2 Q2W, INTRAVENOUS NOS
     Route: 042
     Dates: start: 20040421, end: 20040422

REACTIONS (2)
  - GASTROINTESTINAL HAEMORRHAGE [None]
  - PLATELET COUNT DECREASED [None]
